FAERS Safety Report 5298986-9 (Version None)
Quarter: 2007Q2

REPORT INFORMATION
  Report Type: 
  Country: None (occurrence: None)
  Receive Date: 20070417
  Receipt Date: 20070403
  Transmission Date: 20071010
  Serious: Yes (Hospitalization, Other)
  Sender: FDA-Public Use
  Company Number: US-AMGEN-US204551

PATIENT
  Sex: Female

DRUGS (16)
  1. ARANESP [Suspect]
     Indication: DIALYSIS
     Route: 058
     Dates: start: 20050513
  2. ATACAND [Concomitant]
  3. CALCITRIOL [Concomitant]
  4. CALCIUM CARBONATE [Concomitant]
  5. COREG [Concomitant]
  6. FERROUS SULFATE [Concomitant]
  7. NORVASC [Concomitant]
  8. PHOSLO [Concomitant]
  9. POTASSIUM CHLORIDE [Concomitant]
  10. NEPHRO-CAPS [Concomitant]
  11. PREDNISONE TAB [Concomitant]
  12. TYLENOL [Concomitant]
  13. VENOFER [Concomitant]
  14. RENAGEL [Concomitant]
  15. PHENYTOIN [Concomitant]
     Dates: start: 20021030
  16. CYCLOSPORINE [Concomitant]

REACTIONS (7)
  - HYPOCALCAEMIA [None]
  - KIDNEY TRANSPLANT REJECTION [None]
  - MARROW HYPERPLASIA [None]
  - PARATHYROID DISORDER [None]
  - RETICULOCYTOSIS [None]
  - THERAPEUTIC RESPONSE DECREASED [None]
  - THROMBOCYTOPENIA [None]
